FAERS Safety Report 18678179 (Version 4)
Quarter: 2021Q1

REPORT INFORMATION
  Report Type: Spontaneous
  Country: US (occurrence: US)
  Receive Date: 20201229
  Receipt Date: 20210222
  Transmission Date: 20210419
  Serious: No
  Sender: FDA-Public Use
  Company Number: US-PFIZER INC-2020509747

PATIENT
  Age: 56 Year
  Sex: Female
  Weight: 119.73 kg

DRUGS (7)
  1. INFLIXIMAB [Suspect]
     Active Substance: INFLIXIMAB
     Dosage: UNK
  2. FLUOXETINE [Suspect]
     Active Substance: FLUOXETINE HYDROCHLORIDE
     Dosage: UNK
  3. ESCITALOPRAM [Suspect]
     Active Substance: ESCITALOPRAM OXALATE
     Dosage: UNK
  4. PAROXETINE. [Suspect]
     Active Substance: PAROXETINE
     Dosage: UNK
  5. MICONAZOLE NITRATE. [Suspect]
     Active Substance: MICONAZOLE NITRATE
     Dosage: UNK
  6. VENLAFAXINE HCL [Suspect]
     Active Substance: VENLAFAXINE HYDROCHLORIDE
     Dosage: UNK
  7. REMICADE [Suspect]
     Active Substance: INFLIXIMAB
     Dosage: UNK

REACTIONS (1)
  - Drug hypersensitivity [Unknown]
